FAERS Safety Report 9059434 (Version 3)
Quarter: 2013Q2

REPORT INFORMATION
  Report Type: Spontaneous
  Country: US (occurrence: US)
  Receive Date: 20130212
  Receipt Date: 20130410
  Transmission Date: 20140414
  Serious: Yes (Death, Hospitalization, Other)
  Sender: FDA-Public Use
  Company Number: US-009507513-1302USA002524

PATIENT
  Age: 56 Year
  Sex: Male
  Weight: 89.8 kg

DRUGS (2)
  1. TEMODAR [Suspect]
     Indication: GLIOBLASTOMA MULTIFORME
     Dosage: 150 MG/M2, (DAY1-5)
     Dates: start: 20120109, end: 20120114
  2. TEMODAR [Suspect]
     Dosage: 20 MG/ 2 PILLS, UNK
     Route: 048
     Dates: start: 201212, end: 20121213

REACTIONS (8)
  - Pulmonary embolism [Fatal]
  - Mental status changes [Unknown]
  - Sepsis [Unknown]
  - Convulsion [Unknown]
  - Parathyroid tumour benign [Unknown]
  - Deep vein thrombosis [Unknown]
  - Atrial fibrillation [Unknown]
  - Surgery [Unknown]
